FAERS Safety Report 13283737 (Version 3)
Quarter: 2017Q1

REPORT INFORMATION
  Report Type: Spontaneous
  Country: CN (occurrence: CN)
  Receive Date: 20170301
  Receipt Date: 20170313
  Transmission Date: 20170428
  Serious: Yes (Other)
  Sender: FDA-Public Use
  Company Number: CN-ABBVIE-17P-035-1891350-00

PATIENT
  Age: 17 Year
  Sex: Female

DRUGS (1)
  1. DEPAKINE CHRONO [Suspect]
     Active Substance: VALPROATE SODIUM
     Indication: EPILEPSY
     Dosage: EXTENDED RELEASE
     Route: 048
     Dates: start: 201610

REACTIONS (6)
  - Epilepsy [Recovered/Resolved]
  - Suspected counterfeit product [Unknown]
  - Muscular weakness [Recovered/Resolved]
  - Strabismus [Recovered/Resolved]
  - Epilepsy [Recovered/Resolved]
  - Tic [Recovered/Resolved]

NARRATIVE: CASE EVENT DATE: 20170221
